FAERS Safety Report 9530037 (Version 2)
Quarter: 2014Q1

REPORT INFORMATION
  Report Type: Spontaneous
  Country: DK (occurrence: CA)
  Receive Date: 20130917
  Receipt Date: 20140123
  Transmission Date: 20141002
  Serious: Yes (Other)
  Sender: FDA-Public Use
  Company Number: CA-FRI-1000048800

PATIENT
  Age: 55 Year
  Sex: Female
  Weight: 55.3 kg

DRUGS (6)
  1. ESCITALOPRAM [Suspect]
     Indication: DEPRESSIVE SYMPTOM
     Dosage: 5 MG
     Route: 048
     Dates: start: 20130124, end: 20130202
  2. ESTROGEL [Concomitant]
     Route: 062
  3. LAMISIL [Concomitant]
     Route: 048
     Dates: start: 201212
  4. PROMETRIUM [Concomitant]
     Dosage: 100 MG
  5. ZOPICLONE [Concomitant]
     Dosage: 0.5357 MG
  6. ZOPICLONE [Concomitant]
     Dosage: 7.5 MG

REACTIONS (19)
  - Chest pain [Not Recovered/Not Resolved]
  - Throat tightness [Not Recovered/Not Resolved]
  - Anxiety [Not Recovered/Not Resolved]
  - Asthenia [Not Recovered/Not Resolved]
  - Depressed mood [Not Recovered/Not Resolved]
  - Diarrhoea [Not Recovered/Not Resolved]
  - Dizziness [Not Recovered/Not Resolved]
  - Dyspnoea [Not Recovered/Not Resolved]
  - Emotional disorder [Not Recovered/Not Resolved]
  - Rash [Not Recovered/Not Resolved]
  - Fatigue [Not Recovered/Not Resolved]
  - Pallor [Not Recovered/Not Resolved]
  - Headache [Not Recovered/Not Resolved]
  - Irritability [Not Recovered/Not Resolved]
  - Nausea [Not Recovered/Not Resolved]
  - Pharyngeal oedema [Not Recovered/Not Resolved]
  - Throat irritation [Not Recovered/Not Resolved]
  - Dyspepsia [Not Recovered/Not Resolved]
  - Off label use [Unknown]
